FAERS Safety Report 4456600-6 (Version None)
Quarter: 2004Q3

REPORT INFORMATION
  Report Type: 
  Country: None (occurrence: None)
  Receive Date: 20040921
  Receipt Date: 20040909
  Transmission Date: 20050211
  Serious: Yes (Other)
  Sender: FDA-Public Use
  Company Number: PROG00204003172

PATIENT
  Sex: Female

DRUGS (1)
  1. PROMETRIUM [Suspect]
     Dosage: 200 MG DAILY, 100 MG DAILY

REACTIONS (2)
  - ABORTION SPONTANEOUS [None]
  - DRUG EXPOSURE DURING PREGNANCY [None]
